FAERS Safety Report 17499126 (Version 1)
Quarter: 2020Q1

REPORT INFORMATION
  Report Type: Report from Study
  Country: US (occurrence: US)
  Receive Date: 20200305
  Receipt Date: 20200305
  Transmission Date: 20200409
  Serious: Yes (Hospitalization)
  Sender: FDA-Public Use
  Company Number: US-ROCHE-2561345

PATIENT
  Age: 71 Year
  Sex: Male
  Weight: 86.1 kg

DRUGS (21)
  1. HUMALOG [Concomitant]
     Active Substance: INSULIN LISPRO
  2. CALCIUM;VITAMIN D NOS [Concomitant]
  3. LANTUS [Concomitant]
     Active Substance: INSULIN GLARGINE
  4. MORPHINE [Concomitant]
     Active Substance: MORPHINE
  5. PERCOCET [Concomitant]
     Active Substance: ACETAMINOPHEN\OXYCODONE HYDROCHLORIDE
  6. PROCHLORPERAZINE MALEATE. [Concomitant]
     Active Substance: PROCHLORPERAZINE MALEATE
  7. CARVEDILOL. [Concomitant]
     Active Substance: CARVEDILOL
  8. ATORVASTATIN [Concomitant]
     Active Substance: ATORVASTATIN
  9. MEGESTROL [Concomitant]
     Active Substance: MEGESTROL
  10. DENOSUMAB [Concomitant]
     Active Substance: DENOSUMAB
  11. CABOZANTINIB [Suspect]
     Active Substance: CABOZANTINIB
     Indication: HORMONE-REFRACTORY PROSTATE CANCER
     Route: 048
     Dates: start: 20200213
  12. DOCUSATE SODIUM. [Concomitant]
     Active Substance: DOCUSATE SODIUM
  13. FLUDROCORTISONE [Concomitant]
     Active Substance: FLUDROCORTISONE
  14. LORAZEPAM. [Concomitant]
     Active Substance: LORAZEPAM
  15. LOSARTAN. [Concomitant]
     Active Substance: LOSARTAN
  16. MIRALAX [Concomitant]
     Active Substance: POLYETHYLENE GLYCOL 3350
  17. MICRO-K [Concomitant]
     Active Substance: POTASSIUM CHLORIDE
  18. DICLOFENAC [Concomitant]
     Active Substance: DICLOFENAC
  19. ASA [Concomitant]
     Active Substance: ASPIRIN
  20. ATEZOLIZUMAB. [Suspect]
     Active Substance: ATEZOLIZUMAB
     Indication: HORMONE-REFRACTORY PROSTATE CANCER
     Route: 042
     Dates: start: 20200213, end: 20200213
  21. LEUPROLIDE [LEUPRORELIN] [Concomitant]
     Active Substance: LEUPROLIDE ACETATE

REACTIONS (1)
  - Diarrhoea [Unknown]

NARRATIVE: CASE EVENT DATE: 20200219
